FAERS Safety Report 23180394 (Version 1)
Quarter: 2023Q4

REPORT INFORMATION
  Report Type: Spontaneous
  Country: US (occurrence: US)
  Receive Date: 20231114
  Receipt Date: 20231114
  Transmission Date: 20240109
  Serious: Yes (Hospitalization)
  Sender: FDA-Public Use
  Company Number: US-BRISTOL-MYERS SQUIBB COMPANY-2023-162457

PATIENT
  Age: 74 Year
  Sex: Male

DRUGS (2)
  1. REVLIMID [Suspect]
     Active Substance: LENALIDOMIDE
     Indication: Plasma cell myeloma
     Route: 048
     Dates: start: 20211109
  2. REVLIMID [Suspect]
     Active Substance: LENALIDOMIDE
     Dates: start: 20220607

REACTIONS (2)
  - COVID-19 [Unknown]
  - Clostridium difficile colitis [Unknown]

NARRATIVE: CASE EVENT DATE: 20230909
